FAERS Safety Report 16314943 (Version 7)
Quarter: 2020Q4

REPORT INFORMATION
  Report Type: Spontaneous
  Country: CA (occurrence: CA)
  Receive Date: 20190515
  Receipt Date: 20201209
  Transmission Date: 20210113
  Serious: Yes (Other)
  Sender: FDA-Public Use
  Company Number: CA-PFIZER INC-2019186045

PATIENT
  Age: 51 Year
  Sex: Female
  Weight: 54.5 kg

DRUGS (6)
  1. IRON [Concomitant]
     Active Substance: IRON
     Dosage: UNK
     Route: 048
  2. XELJANZ [Suspect]
     Active Substance: TOFACITINIB CITRATE
     Dosage: 5 MG, 2X/DAY (BID)
     Route: 048
     Dates: start: 2019, end: 2019
  3. XELJANZ [Suspect]
     Active Substance: TOFACITINIB CITRATE
     Dosage: 10 MG, 2X/DAY (BID)
     Route: 048
     Dates: start: 2019
  4. XELJANZ [Suspect]
     Active Substance: TOFACITINIB CITRATE
     Indication: COLITIS ULCERATIVE
     Dosage: 10 MG, 2X/DAY (BID)
     Route: 048
     Dates: start: 20190509, end: 2019
  5. PREDNISONE. [Concomitant]
     Active Substance: PREDNISONE
     Dosage: UNK
     Route: 048
  6. PREDNISONE. [Concomitant]
     Active Substance: PREDNISONE
     Dosage: UNK
     Route: 065
     Dates: end: 202002

REACTIONS (8)
  - Condition aggravated [Recovered/Resolved]
  - Haematochezia [Recovered/Resolved]
  - Pain [Not Recovered/Not Resolved]
  - Dizziness [Unknown]
  - Large intestinal haemorrhage [Not Recovered/Not Resolved]
  - Weight increased [Recovered/Resolved]
  - Increased appetite [Unknown]
  - Thirst [Unknown]

NARRATIVE: CASE EVENT DATE: 2019
